APPROVED DRUG PRODUCT: TESTOSTERONE
Active Ingredient: TESTOSTERONE
Strength: 12.5MG/1.25GM ACTUATION
Dosage Form/Route: GEL, METERED;TRANSDERMAL
Application: A212984 | Product #002 | TE Code: AB1
Applicant: ENCUBE ETHICALS PRIVATE LTD
Approved: Feb 9, 2024 | RLD: No | RS: No | Type: RX